FAERS Safety Report 4305322-0 (Version None)
Quarter: 2004Q1

REPORT INFORMATION
  Report Type: 
  Country: None (occurrence: None)
  Receive Date: 20040226
  Receipt Date: 20030512
  Transmission Date: 20041129
  Serious: No
  Sender: FDA-Public Use
  Company Number: US-BRISTOL-MYERS SQUIBB COMPANY-12274015

PATIENT
  Age: 82 Year
  Sex: Female
  Weight: 63 kg

DRUGS (9)
  1. TAXOL [Suspect]
     Indication: LUNG NEOPLASM MALIGNANT
     Route: 042
     Dates: start: 20030416, end: 20030416
  2. KYTRIL [Concomitant]
     Indication: PREMEDICATION
     Route: 042
  3. DECADRON [Concomitant]
     Indication: PREMEDICATION
     Route: 042
  4. BENADRYL [Concomitant]
     Indication: PREMEDICATION
     Route: 042
  5. TAGAMET [Concomitant]
     Indication: PREMEDICATION
     Route: 042
  6. MULTIVITAMIN [Concomitant]
  7. LOTENSIN [Concomitant]
  8. ELAVIL [Concomitant]
  9. TRAZODONE HCL [Concomitant]

REACTIONS (1)
  - BLOOD PRESSURE INCREASED [None]
